FAERS Safety Report 16413765 (Version 1)
Quarter: 2019Q2

REPORT INFORMATION
  Report Type: Report from Study
  Country: DO (occurrence: DO)
  Receive Date: 20190611
  Receipt Date: 20190611
  Transmission Date: 20190711
  Serious: Yes (Other)
  Sender: FDA-Public Use
  Company Number: DO-SA-2019SA155771

PATIENT
  Age: 62 Year
  Sex: Female
  Weight: 85.72 kg

DRUGS (1)
  1. CLOPIDOGREL BISULFATE. [Suspect]
     Active Substance: CLOPIDOGREL BISULFATE
     Indication: THROMBOSIS PROPHYLAXIS
     Dosage: 75 MG, QD
     Route: 048
     Dates: start: 20190502

REACTIONS (3)
  - Myocardial infarction [Unknown]
  - Headache [Not Recovered/Not Resolved]
  - Catheterisation cardiac [Recovered/Resolved]

NARRATIVE: CASE EVENT DATE: 20190502
